FAERS Safety Report 15796375 (Version 3)
Quarter: 2019Q1

REPORT INFORMATION
  Report Type: Spontaneous
  Country: US (occurrence: US)
  Receive Date: 20190108
  Receipt Date: 20190312
  Transmission Date: 20190417
  Serious: No
  Sender: FDA-Public Use
  Company Number: US-TEVA-2019-US-994666

PATIENT
  Age: 70 Year
  Sex: Female

DRUGS (21)
  1. LIPITOR [Concomitant]
     Active Substance: ATORVASTATIN CALCIUM
  2. TRINTELLIX [Concomitant]
     Active Substance: VORTIOXETINE HYDROBROMIDE
  3. NAMZARIC [Concomitant]
     Active Substance: DONEPEZIL HYDROCHLORIDE\MEMANTINE HYDROCHLORIDE
  4. AJOVY [Suspect]
     Active Substance: FREMANEZUMAB-VFRM
     Dates: start: 20181216
  5. INDERAL [Concomitant]
     Active Substance: PROPRANOLOL HYDROCHLORIDE
  6. CITRACAL [Concomitant]
     Active Substance: CALCIUM CITRATE
  7. KETOCONAZOLE 2% [Concomitant]
     Active Substance: KETOCONAZOLE
  8. ABILIFY [Concomitant]
     Active Substance: ARIPIPRAZOLE
  9. KLONOPIN [Concomitant]
     Active Substance: CLONAZEPAM
  10. TIZANIDINE. [Concomitant]
     Active Substance: TIZANIDINE
  11. WELLBUTRIN [Concomitant]
     Active Substance: BUPROPION HYDROCHLORIDE
  12. OMEPRAZOLE. [Concomitant]
     Active Substance: OMEPRAZOLE
  13. RESTATIS EYE DROPS [Concomitant]
  14. NARATRIPTAN [Concomitant]
     Active Substance: NARATRIPTAN HYDROCHLORIDE
  15. MYRBETRIC [Concomitant]
  16. MYSOLINE [Concomitant]
     Active Substance: PRIMIDONE
  17. SEROQUEL [Concomitant]
     Active Substance: QUETIAPINE FUMARATE
  18. VITAMIN D3 [Concomitant]
     Active Substance: CHOLECALCIFEROL
  19. AMITRIPTYLINE [Concomitant]
     Active Substance: AMITRIPTYLINE
  20. COUMADIN [Concomitant]
     Active Substance: WARFARIN SODIUM
  21. DIGITEK [Concomitant]
     Active Substance: DIGOXIN

REACTIONS (5)
  - Immune system disorder [Unknown]
  - Headache [Unknown]
  - Pruritus [Unknown]
  - Rash [Recovered/Resolved]
  - Body tinea [Unknown]

NARRATIVE: CASE EVENT DATE: 20181216
